FAERS Safety Report 11927385 (Version 1)
Quarter: 2016Q1

REPORT INFORMATION
  Report Type: Spontaneous
  Country: GB (occurrence: GB)
  Receive Date: 20160119
  Receipt Date: 20160119
  Transmission Date: 20160526
  Serious: Yes (Life-Threatening, Hospitalization, Other)
  Sender: FDA-Public Use
  Company Number: GB-SA-2016SA008542

PATIENT
  Age: 56 Year
  Sex: Female
  Weight: 58 kg

DRUGS (2)
  1. RIFAMPICIN [Suspect]
     Active Substance: RIFAMPIN
     Indication: LATENT TUBERCULOSIS
     Route: 048
     Dates: start: 20151023
  2. ETHAMBUTOL [Suspect]
     Active Substance: ETHAMBUTOL HYDROCHLORIDE
     Indication: LATENT TUBERCULOSIS
     Route: 065
     Dates: start: 20151023

REACTIONS (8)
  - Thrombocytopenia [Unknown]
  - Abdominal pain upper [Unknown]
  - Haemolysis [Unknown]
  - Liver injury [Unknown]
  - Pancreatitis [Unknown]
  - Chest pain [Unknown]
  - Acute kidney injury [Unknown]
  - Acidosis [Unknown]
